FAERS Safety Report 15712325 (Version 1)
Quarter: 2018Q4

REPORT INFORMATION
  Report Type: Spontaneous
  Country: IT (occurrence: IT)
  Receive Date: 20181212
  Receipt Date: 20181212
  Transmission Date: 20190205
  Serious: Yes (Hospitalization, Other)
  Sender: FDA-Public Use
  Company Number: IT-RANBAXY-2008RR-14264

PATIENT
  Age: 54 Year
  Sex: Female

DRUGS (4)
  1. PREDNISOLONE. [Concomitant]
     Active Substance: PREDNISOLONE
     Indication: IMMUNOSUPPRESSION
     Dosage: 4 MG, QD
     Route: 065
  2. CIPROFLOXACINA RANBAXY 250 MG COMPRESSE RIVESTITE CON FILM [Suspect]
     Active Substance: CIPROFLOXACIN
     Indication: URINARY TRACT INFECTION
     Dosage: 500 MG, BID
     Route: 065
  3. CYCLOSPORINE. [Concomitant]
     Active Substance: CYCLOSPORINE
     Indication: IMMUNOSUPPRESSION
     Dosage: 150 MG, QD
     Route: 065
  4. MYCOPHENOLATE [Concomitant]
     Active Substance: MYCOPHENOLIC ACID
     Indication: IMMUNOSUPPRESSION
     Dosage: 1000 MG, QD
     Route: 065

REACTIONS (5)
  - Gait disturbance [Recovered/Resolved]
  - Tendonitis [Recovered/Resolved]
  - Oedema [Recovered/Resolved]
  - Arthralgia [Recovered/Resolved]
  - Tendon disorder [Recovered/Resolved]
